FAERS Safety Report 4319516-1 (Version None)
Quarter: 2004Q1

REPORT INFORMATION
  Report Type: 
  Country: None (occurrence: None)
  Receive Date: 20040316
  Receipt Date: 20040302
  Transmission Date: 20041129
  Serious: Yes (Hospitalization, Other)
  Sender: FDA-Public Use
  Company Number: USA040258567

PATIENT
  Age: 67 Year
  Sex: Female
  Weight: 52 kg

DRUGS (3)
  1. EVISTA [Suspect]
     Indication: OSTEOPENIA
     Dosage: 60 MG/DAY
     Dates: start: 19980101
  2. ALTACE [Concomitant]
  3. CLARITIN [Concomitant]

REACTIONS (6)
  - DYSPNOEA [None]
  - LUNG INFILTRATION [None]
  - PLEURAL RUB [None]
  - PLEURISY [None]
  - PULMONARY EMBOLISM [None]
  - PULMONARY INFARCTION [None]
